FAERS Safety Report 7049545-9 (Version None)
Quarter: 2010Q4

REPORT INFORMATION
  Report Type: 
  Country: None (occurrence: None)
  Receive Date: 20101018
  Receipt Date: 20101015
  Transmission Date: 20110411
  Serious: Yes (Hospitalization)
  Sender: FDA-Public Use
  Company Number: A0886974A

PATIENT
  Age: 63 Year
  Sex: Female

DRUGS (7)
  1. ALLI [Suspect]
     Indication: WEIGHT LOSS DIET
     Route: 048
     Dates: start: 20091001
  2. VICODIN [Concomitant]
     Indication: KNEE ARTHROPLASTY
  3. IBUPROFEN [Concomitant]
     Indication: KNEE ARTHROPLASTY
  4. LEVOXYL [Concomitant]
     Indication: THYROID DISORDER
  5. METOPROLOL [Concomitant]
     Indication: HYPERTENSION
  6. KLOR-CON [Concomitant]
  7. PLAVIX [Concomitant]

REACTIONS (2)
  - DIVERTICULITIS [None]
  - HAEMORRHAGE [None]
